FAERS Safety Report 16582877 (Version 1)
Quarter: 2019Q3

REPORT INFORMATION
  Report Type: Spontaneous
  Country: PL (occurrence: PL)
  Receive Date: 20190717
  Receipt Date: 20190717
  Transmission Date: 20191004
  Serious: Yes (Other)
  Sender: FDA-Public Use
  Company Number: PL-ROCHE-2356537

PATIENT
  Age: 9 Year
  Sex: Male

DRUGS (13)
  1. CICLOSPORINE [Suspect]
     Active Substance: CYCLOSPORINE
     Indication: PROPHYLAXIS
     Dosage: UNK
     Route: 065
  2. MYCOPHENOLATE MOFETIL. [Suspect]
     Active Substance: MYCOPHENOLATE MOFETIL
     Indication: PRODUCT USED FOR UNKNOWN INDICATION
     Route: 065
  3. FOSCARNET [Suspect]
     Active Substance: FOSCARNET
     Indication: OFF LABEL USE
  4. NALBUPHINE [Suspect]
     Active Substance: NALBUPHINE
     Indication: PAIN
     Route: 042
  5. NALBUPHINE [Suspect]
     Active Substance: NALBUPHINE
     Indication: OFF LABEL USE
  6. CIDOFOVIR. [Suspect]
     Active Substance: CIDOFOVIR
     Indication: ADENOVIRUS INFECTION
     Dosage: UNK
     Route: 043
  7. CIPROFLOXACIN. [Suspect]
     Active Substance: CIPROFLOXACIN
     Indication: OFF LABEL USE
  8. CIPROFLOXACIN. [Suspect]
     Active Substance: CIPROFLOXACIN
     Indication: BK VIRUS INFECTION
     Dosage: UNK
     Route: 065
  9. CICLOSPORINE [Suspect]
     Active Substance: CYCLOSPORINE
     Indication: OFF LABEL USE
  10. CIDOFOVIR. [Suspect]
     Active Substance: CIDOFOVIR
     Indication: OFF LABEL USE
     Dosage: UNK
     Route: 061
  11. CIDOFOVIR. [Suspect]
     Active Substance: CIDOFOVIR
     Dosage: UNK
     Route: 042
  12. FOSCARNET [Suspect]
     Active Substance: FOSCARNET
     Indication: CYTOMEGALOVIRUS INFECTION
     Dosage: UNK
     Route: 042
  13. MYCOPHENOLATE MOFETIL. [Suspect]
     Active Substance: MYCOPHENOLATE MOFETIL
     Indication: OFF LABEL USE

REACTIONS (7)
  - Cystitis haemorrhagic [Unknown]
  - Off label use [Unknown]
  - Pain [Unknown]
  - Cytomegalovirus infection [Unknown]
  - Renal impairment [Recovering/Resolving]
  - Haematuria [Recovered/Resolved]
  - Drug ineffective [Unknown]
